FAERS Safety Report 4806504-1 (Version None)
Quarter: 2005Q4

REPORT INFORMATION
  Report Type: 
  Country: None (occurrence: None)
  Receive Date: 20051021
  Receipt Date: 20050728
  Transmission Date: 20060501
  Serious: Yes (Other)
  Sender: FDA-Public Use
  Company Number: PHBS2005BE11040

PATIENT
  Sex: Male

DRUGS (3)
  1. ZOMETA [Suspect]
     Indication: MULTIPLE MYELOMA
     Route: 042
  2. AREDIA [Suspect]
     Indication: MULTIPLE MYELOMA
     Dosage: 90 MG, QMO
     Route: 042
     Dates: start: 20020301
  3. DEXAMETHASONE [Concomitant]
     Dosage: 90 MG DURING 4 DAYS EVERY 2 WEEKS
     Route: 065
     Dates: start: 20020301

REACTIONS (2)
  - OSTEOLYSIS [None]
  - OSTEONECROSIS [None]
